FAERS Safety Report 7798925-2 (Version None)
Quarter: 2011Q4

REPORT INFORMATION
  Report Type: 
  Country: None (occurrence: None)
  Receive Date: 20111006
  Receipt Date: 20111004
  Transmission Date: 20120403
  Serious: No
  Sender: FDA-Public Use
  Company Number: US-PFIZER INC-2011236421

PATIENT
  Age: 48 Year
  Sex: Female

DRUGS (1)
  1. TETRACYCLINE HCL [Suspect]

REACTIONS (1)
  - TOOTH DISCOLOURATION [None]
